FAERS Safety Report 25759773 (Version 1)
Quarter: 2025Q3

REPORT INFORMATION
  Report Type: Report from Study
  Country: US (occurrence: US)
  Receive Date: 20250904
  Receipt Date: 20250904
  Transmission Date: 20251021
  Serious: No
  Sender: SUNOVION
  Company Number: US-SUMITOMO PHARMA SWITZERLAND GMBH-2025SPA011096

PATIENT
  Age: 76 Year
  Sex: Male

DRUGS (14)
  1. ORGOVYX [Suspect]
     Active Substance: RELUGOLIX
     Indication: Prostate cancer
     Route: 048
     Dates: start: 20250812, end: 20250812
  2. ORGOVYX [Suspect]
     Active Substance: RELUGOLIX
     Route: 048
  3. ASPIRIN [Concomitant]
     Active Substance: ASPIRIN
  4. CRESTOR [Concomitant]
     Active Substance: ROSUVASTATIN CALCIUM
  5. FAMOTIDINE [Concomitant]
     Active Substance: FAMOTIDINE
  6. LATANOPROST [Concomitant]
     Active Substance: LATANOPROST
  7. METFORMIN [Concomitant]
     Active Substance: METFORMIN HYDROCHLORIDE
  8. PLAVIX [Concomitant]
     Active Substance: CLOPIDOGREL BISULFATE
  9. ERLEADA [Concomitant]
     Active Substance: APALUTAMIDE
  10. BRIMONIDINE [Concomitant]
     Active Substance: BRIMONIDINE TARTRATE
  11. MAGNESIUM [Concomitant]
     Active Substance: MAGNESIUM
  12. CALCIUM [Concomitant]
     Active Substance: CALCIUM
  13. ZINC [Concomitant]
     Active Substance: ZINC
  14. BERBERINE [Concomitant]
     Active Substance: BERBERINE

REACTIONS (1)
  - Muscle spasms [Unknown]
